FAERS Safety Report 12276257 (Version 3)
Quarter: 2016Q2

REPORT INFORMATION
  Report Type: Spontaneous
  Country: BR (occurrence: BR)
  Receive Date: 20160418
  Receipt Date: 20160519
  Transmission Date: 20160815
  Serious: Yes (Other)
  Sender: FDA-Public Use
  Company Number: BR-JNJFOC-20160408680

PATIENT
  Sex: Male
  Weight: 70 kg

DRUGS (2)
  1. PREDNISONE. [Concomitant]
     Active Substance: PREDNISONE
     Route: 065
  2. ZYTIGA [Suspect]
     Active Substance: ABIRATERONE ACETATE
     Indication: PROSTATE CANCER
     Dosage: 2 TABLETS BEFORE LUNCH AND ANOTHER 2 AFTER LUNCH.
     Route: 048
     Dates: start: 20160401

REACTIONS (14)
  - Fatigue [Unknown]
  - Medication error [Unknown]
  - Abdominal pain upper [Unknown]
  - Tremor [Unknown]
  - Skin discolouration [Unknown]
  - Constipation [Unknown]
  - Weight decreased [Unknown]
  - Off label use [Unknown]
  - Temperature regulation disorder [Unknown]
  - Drug prescribing error [Unknown]
  - Wrong technique in product usage process [Unknown]
  - Balance disorder [Unknown]
  - Dysgeusia [Unknown]
  - Malaise [Unknown]
